FAERS Safety Report 13438314 (Version 2)
Quarter: 2017Q2

REPORT INFORMATION
  Report Type: Spontaneous
  Country: DE (occurrence: DE)
  Receive Date: 20170413
  Receipt Date: 20170516
  Transmission Date: 20170830
  Serious: Yes (Hospitalization, Other)
  Sender: FDA-Public Use
  Company Number: DE-AMGEN-DEUSP2017052940

PATIENT
  Age: 80 Year
  Sex: Male

DRUGS (2)
  1. XGEVA [Suspect]
     Active Substance: DENOSUMAB
     Indication: PROSTATE CANCER METASTATIC
     Dosage: UNK
     Route: 058
     Dates: start: 201407, end: 201411
  2. BICALUTAMIDE. [Concomitant]
     Active Substance: BICALUTAMIDE
     Indication: PROSTATE CANCER
     Dosage: UNK
     Dates: start: 201611

REACTIONS (12)
  - Intervertebral disc protrusion [Unknown]
  - Vocal cord paresis [Unknown]
  - Knee arthroplasty [Unknown]
  - Sciatica [Unknown]
  - Hypertension [Unknown]
  - Osteonecrosis of jaw [Not Recovered/Not Resolved]
  - Coronary artery disease [Unknown]
  - Osteolysis [Unknown]
  - Hypercholesterolaemia [Unknown]
  - Clear cell renal cell carcinoma [Unknown]
  - Glaucoma [Unknown]
  - Varicose vein [Unknown]

NARRATIVE: CASE EVENT DATE: 20161206
